FAERS Safety Report 6546391-7 (Version None)
Quarter: 2010Q1

REPORT INFORMATION
  Report Type: 
  Country: None (occurrence: None)
  Receive Date: 20100122
  Receipt Date: 20100113
  Transmission Date: 20100710
  Serious: No
  Sender: FDA-Public Use
  Company Number: JP-ASTRAZENECA-2009SE31475

PATIENT
  Age: 26719 Day
  Sex: Female
  Weight: 56 kg

DRUGS (11)
  1. CRESTOR [Suspect]
     Indication: DYSLIPIDAEMIA
     Route: 048
     Dates: start: 20090216, end: 20091021
  2. CARDENALIN [Concomitant]
     Indication: HYPERTENSION
     Route: 048
     Dates: start: 20090216, end: 20090414
  3. SERMION [Concomitant]
     Indication: CEREBRAL INFARCTION
     Route: 048
     Dates: start: 20090216, end: 20090414
  4. URSO 250 [Concomitant]
     Indication: LIVER DISORDER
     Route: 048
     Dates: start: 20090216, end: 20090414
  5. URSO 250 [Concomitant]
     Route: 048
     Dates: start: 20090415
  6. PANALDINE [Concomitant]
     Indication: CEREBRAL INFARCTION
     Route: 048
     Dates: start: 20090216, end: 20090414
  7. GASTER [Concomitant]
     Indication: GASTRITIS
     Route: 048
     Dates: start: 20090216, end: 20090414
  8. BLOPRESS [Concomitant]
     Indication: HYPERTENSION
     Route: 048
     Dates: start: 20090415
  9. PLETAL [Concomitant]
     Indication: CEREBRAL INFARCTION
     Route: 048
     Dates: start: 20090415
  10. ALDACTONE [Concomitant]
     Indication: OEDEMA
     Route: 048
     Dates: start: 20090501
  11. LASIX [Concomitant]
     Indication: OEDEMA
     Route: 048
     Dates: start: 20090501

REACTIONS (1)
  - BLOOD AMYLASE INCREASED [None]
